FAERS Safety Report 4970963-4 (Version None)
Quarter: 2006Q2

REPORT INFORMATION
  Report Type: 
  Country: None (occurrence: None)
  Receive Date: 20060411
  Receipt Date: 20060411
  Transmission Date: 20061013
  Serious: Yes (Hospitalization)
  Sender: FDA-Public Use
  Company Number: None

PATIENT
  Age: 57 Year
  Sex: Male
  Weight: 113.3993 kg

DRUGS (5)
  1. ERBITUX [Suspect]
     Indication: PANCREATIC CARCINOMA
     Dosage: 920 MG IV (ONLY DOSE GIVEN)
     Route: 042
     Dates: start: 20060327
  2. OXYCONTIN [Concomitant]
  3. OXYCODONE [Concomitant]
  4. AMBIEN [Concomitant]
  5. NEXIUM [Concomitant]

REACTIONS (3)
  - ASTHENIA [None]
  - BODY TEMPERATURE INCREASED [None]
  - CEREBROVASCULAR ACCIDENT [None]
